FAERS Safety Report 9361971 (Version 1)
Quarter: 2013Q2

REPORT INFORMATION
  Report Type: Other
  Country: ZA (occurrence: ZA)
  Receive Date: 20130621
  Receipt Date: 20130621
  Transmission Date: 20140414
  Serious: Yes (Other)
  Sender: FDA-Public Use
  Company Number: ZA-BRISTOL-MYERS SQUIBB COMPANY-19030071

PATIENT
  Sex: 0

DRUGS (7)
  1. EFAVIRENZ CAPS [Suspect]
     Indication: ANTIRETROVIRAL THERAPY
     Route: 048
  2. STAVUDINE [Suspect]
     Indication: ANTIRETROVIRAL THERAPY
  3. ZIDOVUDINE [Suspect]
     Indication: ANTIRETROVIRAL THERAPY
  4. LAMIVUDINE [Suspect]
     Indication: ANTIRETROVIRAL THERAPY
  5. ABACAVIR [Suspect]
     Indication: ANTIRETROVIRAL THERAPY
  6. TENOFOVIR [Suspect]
     Indication: ANTIRETROVIRAL THERAPY
  7. EMTRICITABINE [Suspect]
     Indication: ANTIRETROVIRAL THERAPY
     Route: 065

REACTIONS (1)
  - Lactic acidosis [Unknown]
